FAERS Safety Report 8415708-0 (Version None)
Quarter: 2012Q2

REPORT INFORMATION
  Report Type: 
  Country: None (occurrence: None)
  Receive Date: 20120606
  Receipt Date: 20120528
  Transmission Date: 20120825
  Serious: No
  Sender: FDA-Public Use
  Company Number: CA-JNJFOC-20120203393

PATIENT
  Sex: Female
  Weight: 65 kg

DRUGS (8)
  1. REMICADE [Suspect]
     Route: 042
     Dates: start: 20110827
  2. REMICADE [Suspect]
     Indication: COLITIS ULCERATIVE
     Dosage: DOSAGE AND FREQUENCY UNSPECIFIED
     Route: 042
  3. MULTI-VITAMINS [Concomitant]
     Route: 065
  4. ASACOL [Concomitant]
     Route: 065
  5. CALCIUM [Concomitant]
     Route: 065
  6. CITALOPRAM HYDROBROMIDE [Concomitant]
     Route: 065
  7. OMEPRAZOLE (PRISOLEC) [Concomitant]
     Route: 065
  8. VITAMIN D [Concomitant]
     Route: 065

REACTIONS (4)
  - GENITAL RASH [None]
  - DYSURIA [None]
  - FUNGAL INFECTION [None]
  - PRURITUS [None]
